FAERS Safety Report 23896440 (Version 1)
Quarter: 2024Q2

REPORT INFORMATION
  Report Type: Report from Study
  Country: US (occurrence: US)
  Receive Date: 20240524
  Receipt Date: 20240524
  Transmission Date: 20240716
  Serious: Yes (Other)
  Sender: FDA-Public Use
  Company Number: US-JNJFOC-20240549357

PATIENT

DRUGS (2)
  1. SPRAVATO [Suspect]
     Active Substance: ESKETAMINE
     Indication: Depression
     Dosage: ^56 MG, TOTAL DOSE 3^
     Dates: start: 20221214, end: 20240212
  2. SPRAVATO [Suspect]
     Active Substance: ESKETAMINE
     Dosage: ^84 MG, TOTAL DOSE 34^
     Dates: start: 20221222, end: 20240503

REACTIONS (5)
  - Hallucination [Unknown]
  - Anxiety [Unknown]
  - Memory impairment [Unknown]
  - Insomnia [Unknown]
  - Psychotic disorder [Unknown]

NARRATIVE: CASE EVENT DATE: 20240201
